FAERS Safety Report 6206617-6 (Version None)
Quarter: 2009Q2

REPORT INFORMATION
  Report Type: 
  Country: None (occurrence: None)
  Receive Date: 20090528
  Receipt Date: 20090526
  Transmission Date: 20091009
  Serious: Yes (Other)
  Sender: FDA-Public Use
  Company Number: AU-JNJFOC-20090506078

PATIENT
  Sex: Female

DRUGS (3)
  1. TOPAMAX [Suspect]
     Indication: PARTIAL SEIZURES
     Route: 048
  2. TEGRETOL [Concomitant]
     Route: 065
  3. CLOBAZAM [Concomitant]
     Route: 065

REACTIONS (8)
  - ANGIOLIPOMA [None]
  - CONVULSION [None]
  - DRUG INEFFECTIVE [None]
  - HEAD INJURY [None]
  - HYPOKALAEMIA [None]
  - HYPONATRAEMIA [None]
  - METABOLIC ACIDOSIS [None]
  - RENAL TUBULAR ACIDOSIS [None]
